FAERS Safety Report 4799039-6 (Version None)
Quarter: 2005Q4

REPORT INFORMATION
  Report Type: 
  Country: None (occurrence: None)
  Receive Date: 20051014
  Receipt Date: 20050926
  Transmission Date: 20060501
  Serious: Yes (Hospitalization)
  Sender: FDA-Public Use
  Company Number: JP-MERCK-0509USA04318

PATIENT
  Age: 68 Year
  Sex: Male

DRUGS (5)
  1. COZAAR [Suspect]
     Indication: HYPERTENSION
     Route: 048
     Dates: start: 20050112, end: 20050921
  2. CONIEL [Suspect]
     Indication: HYPERTENSION
     Route: 048
     Dates: end: 20050101
  3. CONIEL [Suspect]
     Route: 048
     Dates: start: 20050702, end: 20050910
  4. CARDENALIN [Suspect]
     Indication: HYPERTENSION
     Route: 048
     Dates: start: 20050112, end: 20050921
  5. LIPITOR [Suspect]
     Indication: HYPERLIPIDAEMIA
     Route: 048
     Dates: start: 20050112, end: 20050912

REACTIONS (2)
  - HEPATITIS [None]
  - RHABDOMYOLYSIS [None]
